FAERS Safety Report 7628940-0 (Version None)
Quarter: 2011Q3

REPORT INFORMATION
  Report Type: 
  Country: None (occurrence: None)
  Receive Date: 20110715
  Receipt Date: 20110701
  Transmission Date: 20111222
  Serious: Yes (Other)
  Sender: FDA-Public Use
  Company Number: 2011AP001377

PATIENT
  Age: 34 Year
  Sex: Female

DRUGS (4)
  1. ZOPICLONE (ZOPICLONE) [Concomitant]
  2. ACETAMINOPHEN [Concomitant]
  3. CLARITHROMYCIN [Suspect]
     Indication: PRODUCT USED FOR UNKNOWN INDICATION
     Dosage: PO
     Route: 048
  4. DIHYDROCODEINE BITARTRATE INJ [Concomitant]

REACTIONS (2)
  - STRESS [None]
  - HALLUCINATION, VISUAL [None]
